FAERS Safety Report 6393092-4 (Version None)
Quarter: 2009Q4

REPORT INFORMATION
  Report Type: 
  Country: None (occurrence: None)
  Receive Date: 20091008
  Receipt Date: 20090929
  Transmission Date: 20100525
  Serious: No
  Sender: FDA-Public Use
  Company Number: US-B.I. PHARMACEUTICALS,INC./RIDGEFIELD-2009-BP-10573BP

PATIENT
  Age: 56 Year
  Sex: Male
  Weight: 117.9 kg

DRUGS (7)
  1. MIRAPEX [Suspect]
     Indication: PARKINSON'S DISEASE
     Dosage: 3 MG
     Route: 048
  2. SELEGILINE HCL [Concomitant]
     Dosage: 10 MG
     Dates: start: 20060601
  3. SINEMET [Concomitant]
     Dates: start: 20040517
  4. SINEMET [Concomitant]
     Dates: start: 20090903
  5. LIPITOR [Concomitant]
     Dosage: 20 MG
  6. MULTI-VITAMIN [Concomitant]
  7. VITAMIN E [Concomitant]

REACTIONS (2)
  - SOMNOLENCE [None]
  - SUDDEN ONSET OF SLEEP [None]
